FAERS Safety Report 16364972 (Version 1)
Quarter: 2019Q2

REPORT INFORMATION
  Report Type: Spontaneous
  Country: US (occurrence: US)
  Receive Date: 20190529
  Receipt Date: 20190529
  Transmission Date: 20190711
  Serious: Yes (Hospitalization)
  Sender: FDA-Public Use
  Company Number: US-ROCHE-2326950

PATIENT
  Age: 72 Year
  Sex: Female
  Weight: 88.98 kg

DRUGS (2)
  1. FLECAINIDE [Concomitant]
     Active Substance: FLECAINIDE
     Dosage: ONGOING: NO
     Route: 065
     Dates: start: 20190327
  2. XOLAIR [Suspect]
     Active Substance: OMALIZUMAB
     Indication: ASTHMA
     Dosage: 1 INJECTION IN EACH ARM ;ONGOING: UNKNOWN
     Route: 058
     Dates: start: 20190424

REACTIONS (2)
  - Ventricular fibrillation [Recovered/Resolved]
  - Heart rate irregular [Unknown]

NARRATIVE: CASE EVENT DATE: 20190523
